FAERS Safety Report 10057242 (Version 2)
Quarter: 2014Q2

REPORT INFORMATION
  Report Type: Spontaneous
  Country: JP (occurrence: JP)
  Receive Date: 20140403
  Receipt Date: 20140408
  Transmission Date: 20141212
  Serious: Yes (Death, Other)
  Sender: FDA-Public Use
  Company Number: JP-CELGENEUS-087-21660-14035507

PATIENT
  Age: 64 Year
  Sex: Female
  Weight: 43 kg

DRUGS (3)
  1. ABRAXANE [Suspect]
     Indication: METASTATIC GASTRIC CANCER
     Dosage: 370 MILLIGRAM
     Route: 041
     Dates: start: 20140129, end: 20140129
  2. HEPARIN [Concomitant]
     Indication: PRODUCT USED FOR UNKNOWN INDICATION
     Route: 065
     Dates: start: 20140222
  3. INOVAN [Concomitant]
     Indication: PRODUCT USED FOR UNKNOWN INDICATION
     Route: 065
     Dates: start: 20140301

REACTIONS (4)
  - Cardiac failure [Fatal]
  - Pulmonary embolism [Fatal]
  - Febrile neutropenia [Recovered/Resolved]
  - Alopecia [Not Recovered/Not Resolved]
